FAERS Safety Report 15186210 (Version 2)
Quarter: 2019Q1

REPORT INFORMATION
  Report Type: Report from Study
  Country: US (occurrence: US)
  Receive Date: 20180723
  Receipt Date: 20190130
  Transmission Date: 20190417
  Serious: No
  Sender: FDA-Public Use
  Company Number: US-EXELIXIS-CABO-18012215

PATIENT
  Sex: Female
  Weight: 79.82 kg

DRUGS (14)
  1. CARVEDILOL. [Concomitant]
     Active Substance: CARVEDILOL
  2. LEVOTHYROXINE. [Concomitant]
     Active Substance: LEVOTHYROXINE
  3. HYDROCHLOROTHIAZIDE. [Concomitant]
     Active Substance: HYDROCHLOROTHIAZIDE
  4. MINIVELLE [Concomitant]
     Active Substance: ESTRADIOL
  5. LACTULOSE. [Concomitant]
     Active Substance: LACTULOSE
  6. BIOTIN [Concomitant]
     Active Substance: BIOTIN
  7. PROBIOTIC [Concomitant]
     Active Substance: PROBIOTICS NOS
  8. CIPROFLOXACIN. [Concomitant]
     Active Substance: CIPROFLOXACIN
  9. VALSARTAN. [Concomitant]
     Active Substance: VALSARTAN
  10. BUPROPION HYDROCHLORIDE XL [Concomitant]
     Active Substance: BUPROPION HYDROCHLORIDE
  11. TEMAZEPAM. [Concomitant]
     Active Substance: TEMAZEPAM
  12. CABOMETYX [Suspect]
     Active Substance: CABOZANTINIB S-MALATE
     Indication: RENAL CELL CARCINOMA
     Dosage: 60 MG, QD
     Route: 048
     Dates: start: 20171229
  13. CLARITIN-D NOS [Concomitant]
     Active Substance: LORATADINE\PSEUDOEPHEDRINE SULFATE
  14. COQ10 [Concomitant]
     Active Substance: UBIDECARENONE

REACTIONS (6)
  - Vision blurred [Unknown]
  - Dry mouth [Unknown]
  - Hot flush [Recovering/Resolving]
  - Fatigue [Recovering/Resolving]
  - Asthenia [Recovering/Resolving]
  - Dry eye [Unknown]
